FAERS Safety Report 23971329 (Version 1)
Quarter: 2024Q2

REPORT INFORMATION
  Report Type: Spontaneous
  Country: GH (occurrence: GH)
  Receive Date: 20240613
  Receipt Date: 20240613
  Transmission Date: 20240716
  Serious: Yes (Death, Hospitalization)
  Sender: FDA-Public Use
  Company Number: GH-STRIDES ARCOLAB LIMITED-2024SP006673

PATIENT
  Sex: Female

DRUGS (3)
  1. EFAVIRENZ [Suspect]
     Active Substance: EFAVIRENZ
     Indication: Perinatal HIV infection
     Dosage: UNK (RECEIVING FROM AGE OF APROXIMATELY 8 YEARS)
     Route: 065
  2. LAMIVUDINE [Suspect]
     Active Substance: LAMIVUDINE
     Indication: Perinatal HIV infection
     Dosage: UNK (RECEIVING FROM AGE OF APROXIMATELY 8 YEARS)
     Route: 065
  3. ZIDOVUDINE [Suspect]
     Active Substance: ZIDOVUDINE
     Indication: Perinatal HIV infection
     Dosage: UNK (RECEIVING FROM AGE OF APROXIMATELY 8 YEARS)
     Route: 065

REACTIONS (2)
  - Meningitis cryptococcal [Fatal]
  - Treatment noncompliance [Fatal]
